FAERS Safety Report 6564288-3 (Version None)
Quarter: 2010Q1

REPORT INFORMATION
  Report Type: 
  Country: None (occurrence: None)
  Receive Date: 20100201
  Receipt Date: 20100121
  Transmission Date: 20100710
  Serious: Yes (Hospitalization)
  Sender: FDA-Public Use
  Company Number: BR-BAYER-201010792LA

PATIENT
  Age: 25 Year
  Sex: Female

DRUGS (2)
  1. BETAFERON [Suspect]
     Indication: RELAPSING-REMITTING MULTIPLE SCLEROSIS
     Dosage: TOTAL DAILY DOSE: 8 MIU
     Route: 058
     Dates: start: 20091224
  2. FLUOXETINE [Concomitant]
     Indication: SEDATIVE THERAPY
     Dosage: TOTAL DAILY DOSE: 1 DF
     Route: 048
     Dates: start: 20091224

REACTIONS (6)
  - ABASIA [None]
  - APHASIA [None]
  - DYSPHAGIA [None]
  - HEMIPLEGIA [None]
  - MULTIPLE SCLEROSIS RELAPSE [None]
  - URINARY INCONTINENCE [None]
